FAERS Safety Report 11880284 (Version 1)
Quarter: 2015Q4

REPORT INFORMATION
  Report Type: Spontaneous
  Country: US (occurrence: US)
  Receive Date: 20151230
  Receipt Date: 20151230
  Transmission Date: 20160305
  Serious: Yes (Other)
  Sender: FDA-Public Use
  Company Number: US-BAYER-2015-494968

PATIENT
  Sex: Male

DRUGS (6)
  1. DARUNAVIR [Concomitant]
     Active Substance: DARUNAVIR
  2. TYLENOL WITH CODEINE [Concomitant]
     Active Substance: ACETAMINOPHEN\CODEINE PHOSPHATE
  3. NORVIR [Concomitant]
     Active Substance: RITONAVIR
  4. CELEBREX [Concomitant]
     Active Substance: CELECOXIB
  5. TRUVADA [Concomitant]
     Active Substance: EMTRICITABINE\TENOFOVIR DISOPROXIL FUMARATE
  6. KOGENATE FS [Suspect]
     Active Substance: ANTIHEMOPHILIC FACTOR, HUMAN RECOMBINANT
     Indication: FACTOR VIII DEFICIENCY
     Dosage: 2145 IU, TWICE A WEEK AND AS NEEDED FOR BLEEDING
     Route: 042

REACTIONS (1)
  - Haemarthrosis [Not Recovered/Not Resolved]
